FAERS Safety Report 6856810-4 (Version None)
Quarter: 2010Q3

REPORT INFORMATION
  Report Type: 
  Country: None (occurrence: None)
  Receive Date: 20100719
  Receipt Date: 20100708
  Transmission Date: 20110219
  Serious: Yes (Other)
  Sender: FDA-Public Use
  Company Number: US-AMGEN-QUU423333

PATIENT
  Sex: Female

DRUGS (1)
  1. ENBREL [Suspect]
     Indication: RHEUMATOID ARTHRITIS
     Route: 058
     Dates: start: 20100618, end: 20100701

REACTIONS (5)
  - ABDOMINAL DISTENSION [None]
  - OEDEMA MOUTH [None]
  - THROAT IRRITATION [None]
  - TONGUE DISORDER [None]
  - URTICARIA [None]
